FAERS Safety Report 8811224 (Version 1)
Quarter: 2012Q4

REPORT INFORMATION
  Report Type: Spontaneous
  Country: US (occurrence: None)
  Receive Date: 20120924
  Receipt Date: 20120924
  Transmission Date: 20130627
  Serious: Yes (Other)
  Sender: FDA-Public Use
  Company Number: 2012-01368

PATIENT
  Age: 66 Year
  Sex: Female
  Weight: 104.33 kg

DRUGS (12)
  1. QUINAPRIL [Suspect]
     Indication: BLOOD PRESSURE HIGH
     Route: 048
     Dates: start: 2010, end: 201206
  2. ALLOPURINOL [Concomitant]
  3. EZETIMIBE (ZETIA) [Concomitant]
  4. ATORVASTATIN (TABLETS) [Concomitant]
  5. AMLODIPINE + VALSARTAN (EXFORGE) [Concomitant]
  6. ATENOLOL (TABLETS) [Concomitant]
  7. NAPROXEN (TABLETS) [Concomitant]
  8. LEVOTHYROXINE (TABLETS) [Concomitant]
  9. SPIRONOLACTONE (TABLETS) [Concomitant]
  10. HYDRALAZINE (TABLETS) [Concomitant]
  11. CLONIDINE (TABLETS) [Concomitant]
  12. LEVEMIR INSULIN (INJECTION) [Concomitant]

REACTIONS (4)
  - Pain in extremity [None]
  - Dysstasia [None]
  - Drug ineffective [None]
  - Neuropathy peripheral [None]
